FAERS Safety Report 17963400 (Version 5)
Quarter: 2020Q3

REPORT INFORMATION
  Report Type: Report from Study
  Country: US (occurrence: US)
  Receive Date: 20200630
  Receipt Date: 20200807
  Transmission Date: 20201103
  Serious: Yes (Other)
  Sender: FDA-Public Use
  Company Number: NVSC2020US182711

PATIENT
  Sex: Female

DRUGS (1)
  1. XIIDRA [Suspect]
     Active Substance: LIFITEGRAST
     Indication: PRODUCT USED FOR UNKNOWN INDICATION
     Dosage: UNK
     Route: 065
     Dates: start: 20200305

REACTIONS (6)
  - Sjogren^s syndrome [Unknown]
  - Cataract [Unknown]
  - Dry eye [Recovering/Resolving]
  - Coronavirus infection [Unknown]
  - Botulism [Unknown]
  - Cough [Unknown]
